FAERS Safety Report 9944265 (Version 1)
Quarter: 2014Q1

REPORT INFORMATION
  Report Type: Report from Study
  Country: US (occurrence: US)
  Receive Date: 20140303
  Receipt Date: 20140303
  Transmission Date: 20141002
  Serious: No
  Sender: FDA-Public Use
  Company Number: US-ABBVIE-13P-163-1052668-00

PATIENT
  Age: 62 Year
  Sex: Male

DRUGS (11)
  1. HUMIRA [Suspect]
     Indication: CROHN^S DISEASE
     Dates: start: 201108
  2. SUCRALFATE [Concomitant]
     Indication: GASTROOESOPHAGEAL REFLUX DISEASE
  3. NEXIUM [Concomitant]
     Indication: GASTROOESOPHAGEAL REFLUX DISEASE
  4. XANAX [Concomitant]
     Indication: DEPRESSION
  5. ZOLOFT [Concomitant]
     Indication: DEPRESSION
  6. LIVALO [Concomitant]
     Indication: BLOOD CHOLESTEROL INCREASED
  7. ALLEGRA [Concomitant]
     Indication: HYPERSENSITIVITY
     Dosage: 1 A DAY AS NEEDED
  8. IMURAN [Concomitant]
     Indication: CROHN^S DISEASE
  9. BUDESONIDE [Concomitant]
     Indication: CROHN^S DISEASE
  10. KLOR-CON [Concomitant]
     Indication: MINERAL SUPPLEMENTATION
  11. LISINOPRIL [Concomitant]
     Indication: HYPERTENSION

REACTIONS (2)
  - Injection site pain [Recovered/Resolved]
  - Injection site bruising [Recovered/Resolved]
